FAERS Safety Report 4431249-X (Version None)
Quarter: 2004Q3

REPORT INFORMATION
  Report Type: 
  Country: None (occurrence: None)
  Receive Date: 20040818
  Receipt Date: 20040804
  Transmission Date: 20050211
  Serious: Yes (Other)
  Sender: FDA-Public Use
  Company Number: GBS040815373

PATIENT
  Age: 54 Year
  Sex: Female

DRUGS (1)
  1. GEMCITABINE HYDROCHLORIDE-IV (GEMCITABINE) [Suspect]
     Indication: PANCREATIC CARCINOMA
     Dates: start: 20030701

REACTIONS (6)
  - APHASIA [None]
  - ASTHENIA [None]
  - BRAIN OEDEMA [None]
  - CONFUSIONAL STATE [None]
  - DYSPHAGIA [None]
  - MICROANGIOPATHY [None]
